FAERS Safety Report 12312950 (Version 1)
Quarter: 2016Q2

REPORT INFORMATION
  Report Type: Spontaneous
  Country: US (occurrence: None)
  Receive Date: 20160427
  Receipt Date: 20160427
  Transmission Date: 20160815
  Serious: Yes (Other)
  Sender: FDA-Public Use
  Company Number: None

PATIENT
  Age: 104 Year
  Sex: Female
  Weight: 72.58 kg

DRUGS (9)
  1. BUPROPION. [Suspect]
     Active Substance: BUPROPION
     Indication: GENERALISED ANXIETY DISORDER
     Dosage: 90 TABLET(S) EVERY 8 HOURS TAKEN BY MOUTH
     Route: 048
  2. AMBIEN [Concomitant]
     Active Substance: ZOLPIDEM TARTRATE
  3. BENADRYL [Concomitant]
     Active Substance: DIPHENHYDRAMINE HYDROCHLORIDE
  4. PROZAC [Concomitant]
     Active Substance: FLUOXETINE HYDROCHLORIDE
  5. BUPROPION. [Suspect]
     Active Substance: BUPROPION
     Indication: DEPRESSION
     Dosage: 90 TABLET(S) EVERY 8 HOURS TAKEN BY MOUTH
     Route: 048
  6. BUPROPION. [Suspect]
     Active Substance: BUPROPION
     Indication: SEASONAL AFFECTIVE DISORDER
     Dosage: 90 TABLET(S) EVERY 8 HOURS TAKEN BY MOUTH
     Route: 048
  7. EFFEXOR [Concomitant]
     Active Substance: VENLAFAXINE HYDROCHLORIDE
  8. PROPRANOLOL [Concomitant]
     Active Substance: PROPRANOLOL\PROPRANOLOL HYDROCHLORIDE
  9. BUPROPION. [Suspect]
     Active Substance: BUPROPION
     Indication: OBSESSIVE-COMPULSIVE DISORDER
     Dosage: 90 TABLET(S) EVERY 8 HOURS TAKEN BY MOUTH
     Route: 048

REACTIONS (3)
  - Depersonalisation/derealisation disorder [None]
  - Eating disorder [None]
  - Headache [None]

NARRATIVE: CASE EVENT DATE: 20110615
